FAERS Safety Report 14525623 (Version 1)
Quarter: 2018Q1

REPORT INFORMATION
  Report Type: Spontaneous
  Country: US (occurrence: US)
  Receive Date: 20180211
  Receipt Date: 20180211
  Transmission Date: 20180509
  Serious: Yes (Life-Threatening, Hospitalization, Other)
  Sender: FDA-Public Use
  Company Number: None

PATIENT
  Age: 78 Year
  Sex: Female
  Weight: 93.15 kg

DRUGS (5)
  1. CITRICAL WITH D3 [Concomitant]
  2. XARELTO [Suspect]
     Active Substance: RIVAROXABAN
     Indication: THROMBOSIS
     Route: 048
     Dates: start: 20180110, end: 20180122
  3. PROTONIX [Concomitant]
     Active Substance: PANTOPRAZOLE SODIUM
  4. VITAMIN C [Concomitant]
     Active Substance: ASCORBIC ACID
  5. CALTRATE [Concomitant]
     Active Substance: CALCIUM CARBONATE

REACTIONS (2)
  - Ulcer haemorrhage [None]
  - Internal haemorrhage [None]

NARRATIVE: CASE EVENT DATE: 20180110
